FAERS Safety Report 9146312 (Version 1)
Quarter: 2013Q1

REPORT INFORMATION
  Report Type: Spontaneous
  Country: US (occurrence: US)
  Receive Date: 20130307
  Receipt Date: 20130307
  Transmission Date: 20140127
  Serious: Yes (Other)
  Sender: FDA-Public Use
  Company Number: US-PFIZER INC-2013075989

PATIENT
  Sex: Male

DRUGS (4)
  1. IRINOTECAN HCL [Suspect]
     Indication: COLORECTAL CANCER METASTATIC
     Dosage: UNK
     Route: 042
  2. FLUOROURACIL [Suspect]
     Indication: COLORECTAL CANCER METASTATIC
     Dosage: UNK
  3. FOLINIC ACID [Suspect]
     Indication: COLORECTAL CANCER METASTATIC
     Dosage: UNK
  4. ZALTRAP [Suspect]
     Dosage: 630 MG, UNK
     Dates: start: 201212

REACTIONS (4)
  - Hypertension [Unknown]
  - Proteinuria [Recovering/Resolving]
  - Blood creatinine increased [Recovering/Resolving]
  - Haematuria [Unknown]
